FAERS Safety Report 7585342-3 (Version None)
Quarter: 2011Q3

REPORT INFORMATION
  Report Type: 
  Country: None (occurrence: None)
  Receive Date: 20110701
  Receipt Date: 20091122
  Transmission Date: 20111222
  Serious: Yes (Death, Other)
  Sender: FDA-Public Use
  Company Number: US-BAYER-200939899NA

PATIENT
  Age: 79 Year
  Sex: Male
  Weight: 77 kg

DRUGS (5)
  1. IMDUR [Concomitant]
     Dosage: 120 MG, QD
     Route: 048
     Dates: start: 20061206
  2. CATAPRES [Concomitant]
     Dosage: 0.3 MG, QD
     Route: 062
     Dates: start: 20050318
  3. TRASYLOL [Suspect]
     Indication: PRODUCT USED FOR UNKNOWN INDICATION
     Route: 042
     Dates: start: 20070301
  4. ZAROXOLYN [Concomitant]
     Dosage: 2.5 MG, QD
     Route: 048
     Dates: start: 20050214
  5. ATENOLOL [Concomitant]
     Dosage: 100 MG, QD
     Route: 048
     Dates: start: 20050214

REACTIONS (13)
  - MULTI-ORGAN FAILURE [None]
  - RENAL INJURY [None]
  - STRESS [None]
  - UNEVALUABLE EVENT [None]
  - PAIN [None]
  - INJURY [None]
  - RENAL FAILURE [None]
  - RENAL IMPAIRMENT [None]
  - EMOTIONAL DISTRESS [None]
  - FEAR [None]
  - ANXIETY [None]
  - DEATH [None]
  - ANHEDONIA [None]
